FAERS Safety Report 8017229-6 (Version None)
Quarter: 2012Q1

REPORT INFORMATION
  Report Type: 
  Country: None (occurrence: None)
  Receive Date: 20120102
  Receipt Date: 20111229
  Transmission Date: 20120608
  Serious: Yes (Disabling)
  Sender: FDA-Public Use
  Company Number: PHHO2007FI17653

PATIENT
  Sex: Male

DRUGS (3)
  1. VITAMIN D [Concomitant]
     Indication: METASTASES TO BONE
  2. ZOLEDRONIC [Suspect]
     Indication: METASTASES TO BONE
     Dosage: 4MF EVERY THREE MONTHS
     Route: 042
     Dates: start: 20041213, end: 20070531
  3. CALCIUM ACETATE [Concomitant]
     Indication: METASTASES TO BONE

REACTIONS (2)
  - OSTEONECROSIS OF JAW [None]
  - PAIN IN JAW [None]
